FAERS Safety Report 8097013-8 (Version None)
Quarter: 2012Q1

REPORT INFORMATION
  Report Type: 
  Country: None (occurrence: None)
  Receive Date: 20120129
  Receipt Date: 20111205
  Transmission Date: 20120608
  Serious: No
  Sender: FDA-Public Use
  Company Number: US-ABBOTT-11P-163-0880845-00

PATIENT
  Sex: Female

DRUGS (1)
  1. HUMIRA [Suspect]
     Indication: RHEUMATOID ARTHRITIS
     Route: 058
     Dates: start: 20110901

REACTIONS (7)
  - ARTHRALGIA [None]
  - JOINT SWELLING [None]
  - FEELING HOT [None]
  - INJURY [None]
  - PAIN IN EXTREMITY [None]
  - FALL [None]
  - TENDON PAIN [None]
